FAERS Safety Report 14603602 (Version 2)
Quarter: 2018Q1

REPORT INFORMATION
  Report Type: Spontaneous
  Country: JP (occurrence: JP)
  Receive Date: 20180306
  Receipt Date: 20180320
  Transmission Date: 20180509
  Serious: Yes (Other)
  Sender: FDA-Public Use
  Company Number: JP-PFIZER INC-2017509155

PATIENT
  Age: 82 Year
  Sex: Female

DRUGS (2)
  1. FOLIC ACID. [Concomitant]
     Active Substance: FOLIC ACID
     Indication: RHEUMATOID ARTHRITIS
     Dosage: 5 MG, WEEKLY (FOR THE PRECEDING FIVE MONTHS)
  2. METHOTREXATE SODIUM. [Suspect]
     Active Substance: METHOTREXATE SODIUM
     Indication: RHEUMATOID ARTHRITIS
     Dosage: 8 MG, WEEKLY (FOR THE PRECEDING FIVE MONTHS)

REACTIONS (3)
  - Lip erosion [Recovering/Resolving]
  - Lip haemorrhage [Recovering/Resolving]
  - Anaemia macrocytic [Recovering/Resolving]
